FAERS Safety Report 12253777 (Version 1)
Quarter: 2016Q2

REPORT INFORMATION
  Report Type: Spontaneous
  Country: LV (occurrence: LV)
  Receive Date: 20160411
  Receipt Date: 20160411
  Transmission Date: 20160815
  Serious: Yes (Death)
  Sender: FDA-Public Use
  Company Number: LV-JNJFOC-20160329627

PATIENT
  Age: 35 Year
  Sex: Male

DRUGS (19)
  1. SIRTURO [Suspect]
     Active Substance: BEDAQUILINE FUMARATE
     Indication: TUBERCULOSIS
     Route: 048
     Dates: start: 20160108, end: 20160316
  2. AMOXICILLIN AND CLAVULANATE POTASSIUM [Concomitant]
     Active Substance: AMOXICILLIN\CLAVULANATE POTASSIUM
     Route: 065
     Dates: start: 20160108, end: 20160317
  3. TERIZIDONE [Concomitant]
     Active Substance: TERIZIDONE
     Indication: TUBERCULOSIS
     Route: 065
     Dates: start: 20160107, end: 20160317
  4. CYANOCOBALAMIN W/PYRIDOXINE [Concomitant]
     Route: 065
     Dates: start: 20160106, end: 20160317
  5. CAPREOMYCIN [Concomitant]
     Active Substance: CAPREOMYCIN
     Indication: TUBERCULOSIS
     Route: 065
     Dates: start: 20160106, end: 20160316
  6. FRAXIPARINE [Concomitant]
     Active Substance: NADROPARIN CALCIUM
     Route: 058
     Dates: start: 20160304, end: 20160317
  7. EUPHYLLINUM [Concomitant]
     Route: 065
     Dates: start: 20160303, end: 20160315
  8. PROTHIONAMIDE [Concomitant]
     Active Substance: PROTIONAMIDE
     Indication: TUBERCULOSIS
     Route: 065
     Dates: start: 20160107, end: 20160317
  9. RANITIDINE. [Concomitant]
     Active Substance: RANITIDINE
     Route: 065
     Dates: start: 20160122, end: 20160317
  10. COAXIL [Concomitant]
     Route: 065
     Dates: start: 20160115, end: 20160317
  11. ISMN [Concomitant]
     Active Substance: ISOSORBIDE MONONITRATE
     Route: 065
     Dates: start: 20160128, end: 20160317
  12. TORASEMIDUM [Concomitant]
     Route: 065
     Dates: start: 20160303, end: 20160317
  13. DIHYDROCODEINI TARTRAS [Concomitant]
     Route: 065
     Dates: start: 20160311, end: 20160315
  14. DIGOXINUM [Concomitant]
     Route: 065
     Dates: start: 20160311, end: 20160315
  15. SOLU-MEDROL [Concomitant]
     Active Substance: METHYLPREDNISOLONE SODIUM SUCCINATE
     Route: 065
     Dates: start: 20160317, end: 20160317
  16. LINEZOLIDUM [Concomitant]
     Indication: TUBERCULOSIS
     Route: 065
     Dates: start: 20160106, end: 20160317
  17. VIGANTOL [Concomitant]
     Route: 065
     Dates: start: 20160112, end: 20160317
  18. SACCHAROMYCES BOULARDII [Concomitant]
     Active Substance: SACCHAROMYCES CEREVISIAE
     Route: 065
     Dates: start: 20160208, end: 20160317
  19. BROMAZEPAMUM [Concomitant]
     Route: 065
     Dates: start: 20160309, end: 20160317

REACTIONS (5)
  - Hypotension [Fatal]
  - Foaming at mouth [Fatal]
  - Death [Fatal]
  - Bradycardia [Fatal]
  - Acute respiratory failure [Fatal]

NARRATIVE: CASE EVENT DATE: 20160317
